FAERS Safety Report 14957776 (Version 2)
Quarter: 2018Q2

REPORT INFORMATION
  Report Type: Spontaneous
  Country: US (occurrence: US)
  Receive Date: 20180531
  Receipt Date: 20180629
  Transmission Date: 20180711
  Serious: No
  Sender: FDA-Public Use
  Company Number: US-SA-2018SA145578

PATIENT
  Age: 79 Year
  Sex: Female
  Weight: 145 kg

DRUGS (1)
  1. TOUJEO [Suspect]
     Active Substance: INSULIN GLARGINE
     Indication: TYPE 2 DIABETES MELLITUS
     Dosage: 44 U, BID
     Route: 051
     Dates: start: 20180508

REACTIONS (2)
  - Device defective [Unknown]
  - Product use issue [Unknown]

NARRATIVE: CASE EVENT DATE: 20180514
